FAERS Safety Report 4405158-6 (Version None)
Quarter: 2004Q3

REPORT INFORMATION
  Report Type: 
  Country: None (occurrence: None)
  Receive Date: 20040723
  Receipt Date: 20040116
  Transmission Date: 20050211
  Serious: No
  Sender: FDA-Public Use
  Company Number: US-BRISTOL-MYERS SQUIBB COMPANY-12481131

PATIENT
  Age: 36 Year
  Sex: Male

DRUGS (2)
  1. MAXIPIME [Suspect]
     Indication: CELLULITIS
     Route: 042
  2. VANCOMYCIN HCL [Concomitant]
     Route: 042

REACTIONS (2)
  - NAUSEA [None]
  - VOMITING [None]
